FAERS Safety Report 4629450-5 (Version None)
Quarter: 2005Q2

REPORT INFORMATION
  Report Type: 
  Country: None (occurrence: None)
  Receive Date: 20050405
  Receipt Date: 20050324
  Transmission Date: 20051028
  Serious: Yes (Hospitalization)
  Sender: FDA-Public Use
  Company Number: 2005010321

PATIENT
  Age: 67 Year
  Sex: Female
  Weight: 78 kg

DRUGS (5)
  1. CELEBREX [Suspect]
     Indication: OSTEOARTHRITIS
     Dosage: 200 MG (200 MG, 1 IN 1 D), ORAL
     Route: 048
     Dates: start: 20001122, end: 20041222
  2. PERINDOPRIL (PERINDOPRIL) [Suspect]
  3. ACETYLSALICYLIC ACID SRT [Concomitant]
  4. DIOSMIN (DIOSMIN) [Concomitant]
  5. LABETALOL HYDROCHLORIDE [Concomitant]

REACTIONS (4)
  - CARDIAC DISORDER [None]
  - CORONARY ARTERY SURGERY [None]
  - HYPERCHOLESTEROLAEMIA [None]
  - TRANSIENT ISCHAEMIC ATTACK [None]
